FAERS Safety Report 18396097 (Version 2)
Quarter: 2021Q2

REPORT INFORMATION
  Report Type: Spontaneous
  Country: US (occurrence: US)
  Receive Date: 20201019
  Receipt Date: 20210406
  Transmission Date: 20210717
  Serious: No
  Sender: FDA-Public Use
  Company Number: US-BAUSCH-BL-2020-029333

PATIENT
  Sex: Female

DRUGS (3)
  1. LOTEMAX [Suspect]
     Active Substance: LOTEPREDNOL ETABONATE
     Indication: CORNEAL OEDEMA
     Route: 047
     Dates: start: 2020
  2. PROLENSA [Suspect]
     Active Substance: BROMFENAC SODIUM
     Indication: POSTOPERATIVE CARE
     Route: 047
     Dates: start: 2020
  3. LOTEMAX SM [Suspect]
     Active Substance: LOTEPREDNOL ETABONATE
     Indication: POSTOPERATIVE CARE
     Route: 047

REACTIONS (6)
  - Product colour issue [Unknown]
  - Inappropriate schedule of product administration [Unknown]
  - Product delivery mechanism issue [Unknown]
  - Product prescribing error [Unknown]
  - Post procedural swelling [Not Recovered/Not Resolved]
  - Post procedural inflammation [Not Recovered/Not Resolved]

NARRATIVE: CASE EVENT DATE: 2020
